FAERS Safety Report 5295951-2 (Version None)
Quarter: 2007Q2

REPORT INFORMATION
  Report Type: 
  Country: None (occurrence: None)
  Receive Date: 20070413
  Receipt Date: 20070329
  Transmission Date: 20071010
  Serious: Yes (Hospitalization)
  Sender: FDA-Public Use
  Company Number: AU-AMGEN-US213434

PATIENT
  Sex: Female

DRUGS (6)
  1. AMG 706 [Suspect]
     Indication: METASTATIC NEOPLASM
     Route: 048
     Dates: start: 20070208
  2. PANITUMUMAB [Suspect]
     Indication: COLORECTAL CANCER
     Route: 042
     Dates: start: 20070206
  3. ATENOLOL [Concomitant]
     Route: 048
     Dates: start: 20030101
  4. IRBESARTAN [Concomitant]
     Route: 048
     Dates: start: 20030101, end: 20070312
  5. ATORVASTATIN CALCIUM [Concomitant]
     Route: 048
     Dates: start: 20030101
  6. OMEPRAZOLE [Concomitant]
     Route: 048
     Dates: start: 20070213, end: 20070302

REACTIONS (2)
  - DIARRHOEA [None]
  - FEBRILE NEUTROPENIA [None]
